FAERS Safety Report 7131956-4 (Version None)
Quarter: 2010Q4

REPORT INFORMATION
  Report Type: 
  Country: None (occurrence: None)
  Receive Date: 20101124
  Receipt Date: 20101124
  Transmission Date: 20110411
  Serious: Yes (Life-Threatening, Hospitalization)
  Sender: FDA-Public Use
  Company Number: None

PATIENT
  Age: 9 Year
  Sex: Female
  Weight: 24.4942 kg

DRUGS (3)
  1. CELEXA [Suspect]
     Indication: DEPRESSED MOOD
     Dosage: 20MG DAILY PO
     Route: 048
  2. ZYPREXA [Suspect]
     Indication: BIPOLAR DISORDER
     Dosage: 10MG DAILY PO
     Route: 048
  3. ZYPREXA [Suspect]
     Indication: DISSOCIATION
     Dosage: 10MG DAILY PO
     Route: 048

REACTIONS (3)
  - INSOMNIA [None]
  - PAIN IN EXTREMITY [None]
  - SUICIDAL IDEATION [None]
